FAERS Safety Report 23591573 (Version 1)
Quarter: 2024Q1

REPORT INFORMATION
  Report Type: Spontaneous
  Country: US (occurrence: None)
  Receive Date: 20240302
  Receipt Date: 20240302
  Transmission Date: 20240409
  Serious: No
  Sender: FDA-Public Use
  Company Number: None

PATIENT
  Age: 45 Year
  Sex: Male
  Weight: 91 kg

DRUGS (2)
  1. IFOSFAMIDE [Suspect]
     Active Substance: IFOSFAMIDE
     Dates: end: 20210712
  2. TAXOL [Suspect]
     Active Substance: PACLITAXEL
     Dates: end: 20210709

REACTIONS (1)
  - Adverse event [None]

NARRATIVE: CASE EVENT DATE: 20210713
